FAERS Safety Report 8877022 (Version 3)
Quarter: 2013Q4

REPORT INFORMATION
  Report Type: Spontaneous
  Country: US (occurrence: None)
  Receive Date: 20120426
  Receipt Date: 20131226
  Transmission Date: 20140711
  Serious: Yes (Other)
  Sender: FDA-Public Use
  Company Number: PHEH2012US002972

PATIENT
  Age: 56 Year
  Sex: Male

DRUGS (8)
  1. GILENYA [Suspect]
     Indication: RELAPSING-REMITTING MULTIPLE SCLEROSIS
     Route: 048
     Dates: start: 20120123
  2. METOPROLOL (METOPROLOL) [Concomitant]
  3. LEXAPRO (ESCITALOPRAM OXALATE) [Concomitant]
  4. LISINOPRIL (LISINOPRIL) [Concomitant]
  5. LIPITOR (ATORVASTATIN CALCIUM) [Concomitant]
  6. GABAPENTIN (GABAPENTIN) [Concomitant]
  7. ALLOPURINOL [Concomitant]
  8. AMBIEN (ZOLPIDEM TARTRATE) [Concomitant]

REACTIONS (10)
  - Sinus bradycardia [None]
  - Ischaemia [None]
  - Electrocardiogram Q wave abnormal [None]
  - Asthenopia [None]
  - Blood pressure decreased [None]
  - Eye swelling [None]
  - Neck pain [None]
  - Dizziness [None]
  - Drug interaction [None]
  - Electrocardiogram T wave abnormal [None]
